FAERS Safety Report 7787060-5 (Version None)
Quarter: 2011Q3

REPORT INFORMATION
  Report Type: 
  Country: None (occurrence: None)
  Receive Date: 20110929
  Receipt Date: 20110926
  Transmission Date: 20111222
  Serious: Yes (Hospitalization)
  Sender: FDA-Public Use
  Company Number: JP-EISAI INC-E2090-01749-SPO-JP

PATIENT
  Sex: Male

DRUGS (3)
  1. FAMOTIDINE [Suspect]
     Dosage: 40 MG
     Route: 048
     Dates: end: 20110907
  2. BETAMETHASONE [Concomitant]
  3. ZONISAMIDE [Suspect]
     Indication: PARALYSIS
     Dosage: 200 MG
     Route: 048
     Dates: start: 20110727, end: 20110907

REACTIONS (2)
  - NEUTROPHIL COUNT DECREASED [None]
  - PYREXIA [None]
